FAERS Safety Report 7351208-7 (Version None)
Quarter: 2011Q1

REPORT INFORMATION
  Report Type: 
  Country: None (occurrence: None)
  Receive Date: 20110314
  Receipt Date: 20110308
  Transmission Date: 20110831
  Serious: Yes (Death, Other)
  Sender: FDA-Public Use
  Company Number: US-CELGENEUS-163-21880-11012607

PATIENT
  Sex: Male

DRUGS (20)
  1. CIPRODEX [Concomitant]
     Dosage: 0.3-0.1%
     Route: 001
  2. FLUCONAZOLE [Concomitant]
     Dosage: 200 MILLIGRAM
     Route: 048
  3. KLOR-CON [Concomitant]
     Dosage: 10 MILLIEQUIVALENTS
     Route: 048
  4. LEVAQUIN [Concomitant]
     Dosage: 500 MILLIGRAM
     Route: 048
  5. METOCLOPRAMIDE HCL [Concomitant]
     Indication: NAUSEA
     Dosage: 10 MILLIGRAM
     Route: 048
  6. WARFARIN SODIUM [Concomitant]
     Indication: PAIN
     Dosage: 1 MILLIGRAM
     Route: 048
  7. VITAMIN B-COMPLEX WITH VITAMIN C [Concomitant]
     Route: 048
  8. AMBIEN [Concomitant]
     Indication: SLEEP DISORDER
     Dosage: 10 MILLIGRAM
     Route: 048
  9. CHLORPROMAZINE [Concomitant]
     Dosage: 25 MILLIGRAM
     Route: 048
  10. MYCELEX [Concomitant]
     Dosage: 10 MILLIGRAM
     Route: 048
  11. AUROTO [Concomitant]
     Dosage: 5.4%-1.4%
     Route: 001
  12. PERCOCET [Concomitant]
     Indication: PAIN
     Dosage: 10-650MG
     Route: 048
  13. FIBER [Concomitant]
     Dosage: 1 TABLET
     Route: 048
  14. FLAGYL [Concomitant]
     Dosage: 500 MILLIGRAM
     Route: 048
  15. POSACONAZOLE [Concomitant]
     Indication: PAIN
     Dosage: 200MG/5ML
     Route: 048
  16. REVLIMID [Suspect]
     Indication: MYELODYSPLASTIC SYNDROME
     Dosage: 5 MILLIGRAM
     Route: 048
     Dates: start: 20101208, end: 20110106
  17. ASPIRIN [Concomitant]
     Dosage: 81 MILLIGRAM
     Route: 048
  18. TEMAZEPAM [Concomitant]
     Dosage: 30 MILLIGRAM
     Route: 048
  19. BACLOFEN [Concomitant]
     Dosage: 20 MILLIGRAM
     Route: 048
  20. LASIX [Concomitant]
     Dosage: 10 MILLIGRAM
     Route: 048

REACTIONS (11)
  - RED BLOOD CELL COUNT DECREASED [None]
  - FALL [None]
  - CEREBRAL HAEMORRHAGE [None]
  - HAEMOGLOBIN DECREASED [None]
  - PLATELET COUNT INCREASED [None]
  - BRAIN MIDLINE SHIFT [None]
  - SUBDURAL HAEMATOMA [None]
  - BRAIN HERNIATION [None]
  - ATELECTASIS [None]
  - LUNG INFILTRATION [None]
  - HAEMATOCRIT DECREASED [None]
